FAERS Safety Report 7395040-7 (Version None)
Quarter: 2011Q2

REPORT INFORMATION
  Report Type: 
  Country: None (occurrence: None)
  Receive Date: 20110405
  Receipt Date: 20110329
  Transmission Date: 20111010
  Serious: Yes (Death, Life-Threatening, Hospitalization)
  Sender: FDA-Public Use
  Company Number: DE-TEVA-273746GER

PATIENT
  Age: 84 Year
  Sex: Male

DRUGS (14)
  1. DIPIPERON [Suspect]
     Route: 048
     Dates: start: 20101119
  2. CLEXANE [Concomitant]
     Route: 058
     Dates: start: 20101118, end: 20101121
  3. LORZAAR [Concomitant]
     Route: 048
     Dates: end: 20101121
  4. AMLODIPINE [Concomitant]
     Route: 048
     Dates: end: 20101121
  5. DIPIPERON [Suspect]
     Route: 048
     Dates: start: 20101120
  6. CONCOR [Concomitant]
     Route: 048
     Dates: end: 20101121
  7. GLIMEPIRIDE [Concomitant]
     Route: 048
     Dates: end: 20101121
  8. HCT HEXAL 12,5 MG [Concomitant]
     Route: 048
     Dates: end: 20101121
  9. MAGNESIUM [Concomitant]
     Route: 048
     Dates: end: 20101121
  10. RISPERDAL [Suspect]
     Route: 048
     Dates: start: 20101121
  11. DIGIMERCK [Concomitant]
     Route: 048
     Dates: end: 20101121
  12. OXAZEPAM [Suspect]
     Route: 048
     Dates: start: 20101121, end: 20101121
  13. RISPERDAL [Suspect]
     Route: 048
     Dates: start: 20101118, end: 20101120
  14. ASPIRIN [Concomitant]
     Route: 048
     Dates: end: 20101121

REACTIONS (1)
  - RESPIRATORY FAILURE [None]
